FAERS Safety Report 12920383 (Version 4)
Quarter: 2016Q4

REPORT INFORMATION
  Report Type: Spontaneous
  Country: US (occurrence: US)
  Receive Date: 20161108
  Receipt Date: 20161202
  Transmission Date: 20170207
  Serious: Yes (Hospitalization, Other)
  Sender: FDA-Public Use
  Company Number: US-TEVA-710391ACC

PATIENT
  Age: 74 Year
  Sex: Male

DRUGS (2)
  1. BENDAMUSTINE HYDROCHLORIDE. [Suspect]
     Active Substance: BENDAMUSTINE HYDROCHLORIDE
     Indication: MANTLE CELL LYMPHOMA STAGE IV
     Dosage: (6 CYCLES)
     Route: 042
  2. RITUXIMAB [Suspect]
     Active Substance: RITUXIMAB
     Indication: MANTLE CELL LYMPHOMA STAGE IV
     Dosage: (6 CYCLES)
     Route: 065

REACTIONS (12)
  - Non-cirrhotic portal hypertension [Unknown]
  - Cytomegalovirus chorioretinitis [Unknown]
  - Off label use [Unknown]
  - Upper gastrointestinal haemorrhage [Recovered/Resolved]
  - Encephalopathy [Recovered/Resolved]
  - Blindness [Unknown]
  - Cytomegalovirus duodenitis [Unknown]
  - Venoocclusive liver disease [Unknown]
  - Gastric mucosal hypertrophy [Unknown]
  - Portal hypertension [Unknown]
  - Cytomegalovirus infection [Unknown]
  - Cytomegalovirus gastritis [Unknown]
